FAERS Safety Report 5271201-8 (Version None)
Quarter: 2007Q1

REPORT INFORMATION
  Report Type: 
  Country: None (occurrence: None)
  Receive Date: 20070321
  Receipt Date: 20070315
  Transmission Date: 20070707
  Serious: Yes (Hospitalization)
  Sender: FDA-Public Use
  Company Number: US-JNJFOC-20061000230

PATIENT
  Sex: Female
  Weight: 66 kg

DRUGS (1)
  1. ORTHO EVRA [Suspect]
     Indication: CONTRACEPTION
     Route: 062

REACTIONS (15)
  - AMENORRHOEA [None]
  - ASTHMA [None]
  - BRONCHITIS [None]
  - CARDIAC FAILURE CONGESTIVE [None]
  - CARDIOMYOPATHY [None]
  - CONGESTIVE CARDIOMYOPATHY [None]
  - DEEP VEIN THROMBOSIS [None]
  - HYPOKALAEMIA [None]
  - MENOPAUSAL SYMPTOMS [None]
  - MITRAL VALVE INCOMPETENCE [None]
  - PHARYNGITIS [None]
  - PULMONARY EMBOLISM [None]
  - SINUSITIS [None]
  - TRICUSPID VALVE INCOMPETENCE [None]
  - UPPER RESPIRATORY TRACT INFECTION [None]
